FAERS Safety Report 15054068 (Version 1)
Quarter: 2018Q2

REPORT INFORMATION
  Report Type: Spontaneous
  Country: US (occurrence: US)
  Receive Date: 20180622
  Receipt Date: 20180622
  Transmission Date: 20180711
  Serious: Yes (Disabling, Other)
  Sender: FDA-Public Use
  Company Number: US-OTSUKA-2018_015648

PATIENT
  Sex: Male

DRUGS (2)
  1. ABILIFY [Suspect]
     Active Substance: ARIPIPRAZOLE
     Indication: MAJOR DEPRESSION
     Dosage: 7.5 MG, UNK
     Route: 065
     Dates: start: 2008
  2. ABILIFY [Suspect]
     Active Substance: ARIPIPRAZOLE
     Indication: ANXIETY
     Dosage: 15 MG, UNK
     Route: 065
     Dates: end: 2018

REACTIONS (16)
  - Sexual dysfunction [Not Recovered/Not Resolved]
  - Compulsive sexual behaviour [Not Recovered/Not Resolved]
  - Gambling disorder [Not Recovered/Not Resolved]
  - Suicidal ideation [Not Recovered/Not Resolved]
  - Anhedonia [Unknown]
  - Condition aggravated [Unknown]
  - Compulsive shopping [Not Recovered/Not Resolved]
  - Pain [Unknown]
  - Product use in unapproved indication [Unknown]
  - Injury [Unknown]
  - Eating disorder [Not Recovered/Not Resolved]
  - Economic problem [Unknown]
  - Emotional distress [Unknown]
  - Anxiety [Unknown]
  - Disability [Unknown]
  - Suicide attempt [Not Recovered/Not Resolved]
